FAERS Safety Report 8308080-8 (Version None)
Quarter: 2012Q1

REPORT INFORMATION
  Report Type: 
  Country: None (occurrence: None)
  Receive Date: 20120327
  Receipt Date: 20091103
  Transmission Date: 20120608
  Serious: Yes (Other)
  Sender: FDA-Public Use
  Company Number: PHEH2009US14170

PATIENT
  Sex: Female
  Weight: 54.4 kg

DRUGS (10)
  1. CINNAMIN 200 (AZAPROPAZONE) [Concomitant]
  2. BIOTIN [Concomitant]
  3. MULTIPLE VITAMINS (ASCORBIC ACID, ERGOCALCIFEROL, FOLIC ACID, RETINOL, [Concomitant]
  4. LOVAZA [Concomitant]
  5. TRILIPIX [Concomitant]
  6. ASPIRIN [Concomitant]
  7. NIASPAN [Concomitant]
  8. GLEEVEC [Suspect]
     Indication: CHRONIC MYELOID LEUKAEMIA
     Dosage: 400 MG, QD, ORAL
     Route: 048
     Dates: start: 20060101
  9. VIVELLE [Concomitant]
  10. MOTRIN [Concomitant]

REACTIONS (9)
  - DRY EYE [None]
  - FATIGUE [None]
  - ANAEMIA [None]
  - CATARACT [None]
  - WHITE BLOOD CELL COUNT DECREASED [None]
  - ARTHRALGIA [None]
  - MYALGIA [None]
  - CONJUNCTIVAL HAEMORRHAGE [None]
  - VISUAL IMPAIRMENT [None]
